FAERS Safety Report 4481309-2 (Version None)
Quarter: 2004Q3

REPORT INFORMATION
  Report Type: 
  Country: None (occurrence: None)
  Receive Date: 20040923
  Receipt Date: 20040628
  Transmission Date: 20050211
  Serious: No
  Sender: FDA-Public Use
  Company Number: USA030947649

PATIENT
  Age: 76 Year
  Sex: Female
  Weight: 41 kg

DRUGS (10)
  1. FORTEO [Suspect]
     Indication: OSTEOPOROSIS
     Dosage: 20 UG DAY
     Dates: start: 20030909, end: 20040101
  2. SYNTHROID [Concomitant]
  3. COZAAR [Concomitant]
  4. COREG [Concomitant]
  5. ACTONEL [Concomitant]
  6. CALCIUM [Concomitant]
  7. VITAMIN D [Concomitant]
  8. LASIX [Concomitant]
  9. NORVASC [Concomitant]
  10. COUMADIN [Concomitant]

REACTIONS (14)
  - ABDOMINAL PAIN UPPER [None]
  - BLOOD PRESSURE INCREASED [None]
  - CHEST PAIN [None]
  - COLITIS [None]
  - DEHYDRATION [None]
  - ENDODONTIC PROCEDURE [None]
  - HYPOTENSION [None]
  - IMPAIRED DRIVING ABILITY [None]
  - INJECTION SITE DISCOLOURATION [None]
  - LOCALISED OEDEMA [None]
  - MIDDLE INSOMNIA [None]
  - OEDEMA PERIPHERAL [None]
  - SYNCOPE [None]
  - WEIGHT DECREASED [None]
